FAERS Safety Report 6451441-2 (Version None)
Quarter: 2009Q4

REPORT INFORMATION
  Report Type: 
  Country: None (occurrence: None)
  Receive Date: 20091123
  Receipt Date: 20081031
  Transmission Date: 20100525
  Serious: No
  Sender: FDA-Public Use
  Company Number: US-BRISTOL-MYERS SQUIBB COMPANY-14394993

PATIENT
  Age: 71 Year
  Sex: Female

DRUGS (1)
  1. AVALIDE [Suspect]
     Indication: BLOOD PRESSURE
     Dosage: DURATION 5-6 YEARS

REACTIONS (1)
  - RASH [None]
